FAERS Safety Report 5786246-9 (Version None)
Quarter: 2008Q2

REPORT INFORMATION
  Report Type: 
  Country: None (occurrence: None)
  Receive Date: 20080624
  Receipt Date: 20080611
  Transmission Date: 20081010
  Serious: No
  Sender: FDA-Public Use
  Company Number: CA-ELI_LILLY_AND_COMPANY-CA200806003101

PATIENT
  Sex: Female

DRUGS (2)
  1. CYMBALTA [Suspect]
     Dosage: 30 MG, UNK
  2. CYMBALTA [Suspect]
     Dosage: 60 MG, UNK

REACTIONS (1)
  - CHROMATURIA [None]
